FAERS Safety Report 19450189 (Version 10)
Quarter: 2022Q1

REPORT INFORMATION
  Report Type: Report from Study
  Country: BR (occurrence: BR)
  Receive Date: 20210622
  Receipt Date: 20220211
  Transmission Date: 20220423
  Serious: Yes (Life-Threatening, Hospitalization, Other)
  Sender: FDA-Public Use
  Company Number: BR-GILEAD-2021-0534558

PATIENT
  Age: 66 Year
  Sex: Male

DRUGS (25)
  1. INFLIXIMAB [Suspect]
     Active Substance: INFLIXIMAB
     Indication: COVID-19
     Dosage: UNK UNK, ONCE
     Route: 042
     Dates: start: 20210427
  2. PLACEBO [Suspect]
     Active Substance: UNSPECIFIED INGREDIENT
     Indication: COVID-19
     Dosage: UNK UNK, ONCE
     Route: 042
     Dates: start: 20210427
  3. REMDESIVIR [Suspect]
     Active Substance: REMDESIVIR
     Indication: COVID-19
     Dosage: UNK UNK, QD
     Route: 042
     Dates: start: 20210427
  4. BISACODYL [Concomitant]
     Active Substance: BISACODYL
  5. CEFEPIME [Concomitant]
     Active Substance: CEFEPIME HYDROCHLORIDE
  6. CLONAZEPAM [Concomitant]
     Active Substance: CLONAZEPAM
  7. DEXAMETHASONE PHOSPHATE [Concomitant]
     Active Substance: DEXAMETHASONE PHOSPHATE
  8. DOMPERIDONE [Concomitant]
     Active Substance: DOMPERIDONE
  9. ENALAPRIL [Concomitant]
     Active Substance: ENALAPRIL
  10. ENOXAPARIN [Concomitant]
     Active Substance: ENOXAPARIN
  11. INSULIN HUMAN [Concomitant]
     Active Substance: INSULIN HUMAN
  12. INSULIN HUMAN [Concomitant]
     Active Substance: INSULIN HUMAN
  13. ISOPHANE INSULIN [Concomitant]
     Active Substance: INSULIN NOS
  14. LACTULOSE [Concomitant]
     Active Substance: LACTULOSE
  15. METAMIZOLE [Concomitant]
     Active Substance: METAMIZOLE
  16. METOPROLOL [Concomitant]
     Active Substance: METOPROLOL
  17. METOPROLOL SUCCINATE [Concomitant]
     Active Substance: METOPROLOL SUCCINATE
  18. METOPROLOL TARTRATE [Concomitant]
     Active Substance: METOPROLOL TARTRATE
  19. OMEPRAZOLE [Concomitant]
     Active Substance: OMEPRAZOLE
  20. SPIRONOLACTONE [Concomitant]
     Active Substance: SPIRONOLACTONE
  21. ZOLPIDEM [Concomitant]
     Active Substance: ZOLPIDEM TARTRATE
  22. METFORMIN [Concomitant]
     Active Substance: METFORMIN HYDROCHLORIDE
  23. ETHAMBUTOL\ISONIAZID\PYRAZINAMIDE\RIFAMPIN [Concomitant]
     Active Substance: ETHAMBUTOL\ISONIAZID\PYRAZINAMIDE\RIFAMPIN
  24. MEROPENEM [Concomitant]
     Active Substance: MEROPENEM
  25. VANCOMYCIN [Concomitant]
     Active Substance: VANCOMYCIN

REACTIONS (3)
  - Tuberculous pleurisy [Recovering/Resolving]
  - Pneumonia bacterial [Recovered/Resolved]
  - Thoracic cavity drainage [Recovered/Resolved]

NARRATIVE: CASE EVENT DATE: 20210518
